FAERS Safety Report 4963502-5 (Version None)
Quarter: 2006Q2

REPORT INFORMATION
  Report Type: 
  Country: None (occurrence: None)
  Receive Date: 20060404
  Receipt Date: 20060404
  Transmission Date: 20061013
  Serious: Yes (Hospitalization)
  Sender: FDA-Public Use
  Company Number: None

PATIENT
  Age: 46 Year
  Sex: Male

DRUGS (7)
  1. THALIDOMIDE [Suspect]
     Indication: AMYOTROPHIC LATERAL SCLEROSIS
     Dosage: 400 MG /DAY
     Dates: start: 20060324
  2. MIRALAX [Concomitant]
  3. ACIPHEX [Concomitant]
  4. TIZANIDINE HCL [Concomitant]
  5. RILUTEK [Concomitant]
  6. AMITRIPTYLINE HCL [Concomitant]
  7. THALOMIDE [Concomitant]

REACTIONS (4)
  - ASPIRATION [None]
  - DRUG INEFFECTIVE [None]
  - NAUSEA [None]
  - VOMITING [None]
